FAERS Safety Report 6360034-7 (Version None)
Quarter: 2009Q3

REPORT INFORMATION
  Report Type: 
  Country: None (occurrence: None)
  Receive Date: 20090917
  Receipt Date: 20090908
  Transmission Date: 20100115
  Serious: Yes (Other)
  Sender: FDA-Public Use
  Company Number: PHHY2009BR38915

PATIENT
  Sex: Male

DRUGS (2)
  1. DIOVAN AMLO FIX [Suspect]
     Dosage: 320/10 MG, UNK
  2. DIOVAN AMLO FIX [Suspect]
     Dosage: 320/5 MG, UNK

REACTIONS (3)
  - CEREBROVASCULAR ACCIDENT [None]
  - DRUG DISPENSING ERROR [None]
  - HYPERTENSION [None]
